FAERS Safety Report 18028402 (Version 2)
Quarter: 2025Q2

REPORT INFORMATION
  Report Type: Spontaneous
  Country: DE (occurrence: DE)
  Receive Date: 20200715
  Receipt Date: 20250620
  Transmission Date: 20250717
  Serious: Yes (Other)
  Sender: AUROBINDO
  Company Number: DE-MYLANLABS-2020M1064154

PATIENT
  Age: 80 Year
  Sex: Female

DRUGS (21)
  1. PAROXETINE [Suspect]
     Active Substance: PAROXETINE
     Indication: Neurodermatitis
     Route: 065
     Dates: start: 201708, end: 201806
  2. GABAPENTIN [Suspect]
     Active Substance: GABAPENTIN
     Indication: Neurodermatitis
     Route: 065
     Dates: start: 201711, end: 201807
  3. MIRTAZAPINE [Suspect]
     Active Substance: MIRTAZAPINE
     Indication: Neurodermatitis
     Route: 065
     Dates: start: 201604, end: 201806
  4. METHOTREXATE [Suspect]
     Active Substance: METHOTREXATE
     Indication: Neurodermatitis
     Dosage: 10 MILLIGRAM, QW
     Route: 065
     Dates: start: 2018
  5. MOMETASONE [Suspect]
     Active Substance: MOMETASONE
     Indication: Neurodermatitis
     Route: 065
     Dates: start: 2017, end: 2018
  6. PIMECROLIMUS [Suspect]
     Active Substance: PIMECROLIMUS
     Indication: Neurodermatitis
     Route: 061
     Dates: start: 2017, end: 2018
  7. TACROLIMUS [Suspect]
     Active Substance: TACROLIMUS
     Indication: Neurodermatitis
     Route: 061
     Dates: start: 2017, end: 2018
  8. CYCLOSPORINE [Suspect]
     Active Substance: CYCLOSPORINE
     Indication: Neurodermatitis
     Route: 065
     Dates: start: 201604, end: 201806
  9. CYCLOSPORINE [Suspect]
     Active Substance: CYCLOSPORINE
     Route: 065
     Dates: start: 201807, end: 201808
  10. CLOBETASOL PROPIONATE [Suspect]
     Active Substance: CLOBETASOL PROPIONATE
     Indication: Neurodermatitis
     Route: 061
     Dates: start: 2015, end: 2015
  11. CLOBETASOL PROPIONATE [Suspect]
     Active Substance: CLOBETASOL PROPIONATE
     Indication: Dermatitis atopic
     Route: 061
     Dates: start: 2016, end: 2016
  12. CLOBETASOL PROPIONATE [Suspect]
     Active Substance: CLOBETASOL PROPIONATE
     Route: 061
     Dates: start: 2018, end: 2018
  13. BETAMETHASONE VALERATE [Suspect]
     Active Substance: BETAMETHASONE VALERATE
     Indication: Neurodermatitis
     Route: 065
     Dates: start: 2015, end: 2016
  14. BETAMETHASONE VALERATE [Suspect]
     Active Substance: BETAMETHASONE VALERATE
     Route: 065
     Dates: start: 2016, end: 2016
  15. BETAMETHASONE VALERATE [Suspect]
     Active Substance: BETAMETHASONE VALERATE
     Route: 061
     Dates: start: 2017, end: 2018
  16. PREDNICARBATE [Suspect]
     Active Substance: PREDNICARBATE
     Indication: Neurodermatitis
     Route: 061
     Dates: start: 2016, end: 2017
  17. PREDNISOLONE [Suspect]
     Active Substance: PREDNISOLONE
     Indication: Neurodermatitis
     Route: 048
     Dates: start: 201804, end: 201804
  18. RITUXIMAB [Concomitant]
     Active Substance: RITUXIMAB
  19. DESLORATADINE [Concomitant]
     Active Substance: DESLORATADINE
     Indication: Neurodermatitis
     Route: 065
     Dates: start: 2018, end: 2019
  20. BENDAMUSTINE [Concomitant]
     Active Substance: BENDAMUSTINE
  21. HYDROXYZINE [Concomitant]
     Active Substance: HYDROXYZINE HYDROCHLORIDE
     Indication: Product used for unknown indication
     Route: 065

REACTIONS (2)
  - Intraductal papillary mucinous neoplasm [Not Recovered/Not Resolved]
  - Off label use [Unknown]

NARRATIVE: CASE EVENT DATE: 20180101
